FAERS Safety Report 6633495-3 (Version None)
Quarter: 2010Q1

REPORT INFORMATION
  Report Type: 
  Country: None (occurrence: None)
  Receive Date: 20100312
  Receipt Date: 20100304
  Transmission Date: 20100710
  Serious: Yes (Hospitalization)
  Sender: FDA-Public Use
  Company Number: DE-ABBOTT-10P-062-0630398-00

PATIENT
  Age: 57 Year
  Sex: Female

DRUGS (17)
  1. ERGENYL CHRONO TABLETS [Suspect]
     Indication: DRUG USE FOR UNKNOWN INDICATION
     Route: 048
     Dates: start: 20090430, end: 20090506
  2. ERGENYL CHRONO TABLETS [Suspect]
     Route: 048
     Dates: start: 20090101, end: 20090429
  3. ERGENYL CHRONO TABLETS [Suspect]
     Route: 048
     Dates: start: 20090507, end: 20090508
  4. ERGENYL CHRONO TABLETS [Suspect]
     Route: 048
     Dates: start: 20090509, end: 20090511
  5. ERGENYL CHRONO TABLETS [Suspect]
     Route: 048
     Dates: start: 20090512, end: 20090513
  6. CYMBALTA [Suspect]
     Indication: DRUG USE FOR UNKNOWN INDICATION
     Route: 048
     Dates: start: 20090101, end: 20090427
  7. CYMBALTA [Suspect]
     Route: 048
     Dates: start: 20090428
  8. MIRTAZAPINE [Suspect]
     Indication: DRUG USE FOR UNKNOWN INDICATION
     Route: 048
     Dates: start: 20090101
  9. ABILIFY [Suspect]
     Indication: DRUG USE FOR UNKNOWN INDICATION
     Route: 048
     Dates: start: 20090430, end: 20090503
  10. ABILIFY [Suspect]
     Route: 048
     Dates: start: 20090504
  11. TAVOR [Suspect]
     Indication: DRUG USE FOR UNKNOWN INDICATION
     Route: 048
     Dates: start: 20090429, end: 20090505
  12. TAVOR [Suspect]
     Route: 048
     Dates: start: 20090506, end: 20090507
  13. MELPERONE [Suspect]
     Indication: DRUG USE FOR UNKNOWN INDICATION
     Route: 048
     Dates: start: 20090430, end: 20090505
  14. MELPERONE [Suspect]
     Route: 048
     Dates: start: 20090506, end: 20090507
  15. JODID [Concomitant]
     Indication: DRUG USE FOR UNKNOWN INDICATION
     Dates: start: 20090101
  16. JATROSOM [Concomitant]
     Indication: DRUG USE FOR UNKNOWN INDICATION
  17. LAMICTAL [Concomitant]
     Indication: DRUG USE FOR UNKNOWN INDICATION

REACTIONS (3)
  - ATAXIA [None]
  - ENCEPHALOPATHY [None]
  - POTENTIATING DRUG INTERACTION [None]
